FAERS Safety Report 9278749 (Version 1)
Quarter: 2013Q2

REPORT INFORMATION
  Report Type: Spontaneous
  Country: US (occurrence: US)
  Receive Date: 20130508
  Receipt Date: 20130508
  Transmission Date: 20140414
  Serious: Yes (Other)
  Sender: FDA-Public Use
  Company Number: US-PFIZER INC-2013141914

PATIENT
  Age: 17 Year
  Sex: Male

DRUGS (4)
  1. PRISTIQ [Suspect]
     Dosage: UNK
  2. LITHIUM [Suspect]
     Dosage: UNK
  3. WELLBUTRIN [Suspect]
     Dosage: UNK
  4. RISPERDAL [Suspect]
     Dosage: UNK

REACTIONS (2)
  - Bipolar disorder [Unknown]
  - Depression [Unknown]
